FAERS Safety Report 9416240 (Version 1)
Quarter: 2013Q3

REPORT INFORMATION
  Report Type: Spontaneous
  Country: US (occurrence: None)
  Receive Date: 20130723
  Receipt Date: 20130723
  Transmission Date: 20140515
  Serious: Yes (Other)
  Sender: FDA-Public Use
  Company Number: None

PATIENT
  Age: 54 Year
  Sex: Female

DRUGS (1)
  1. LEVOFLOXACIN [Suspect]
     Dosage: ONE TABLET
     Route: 048
     Dates: start: 20130602, end: 20130616

REACTIONS (7)
  - Hypoaesthesia [None]
  - Tendon pain [None]
  - Hypoaesthesia [None]
  - Hypoaesthesia [None]
  - Arthralgia [None]
  - Fatigue [None]
  - Mood altered [None]
